FAERS Safety Report 11142005 (Version 1)
Quarter: 2015Q2

REPORT INFORMATION
  Report Type: Spontaneous
  Country: US (occurrence: US)
  Receive Date: 20150527
  Receipt Date: 20150527
  Transmission Date: 20150821
  Serious: Yes (Other)
  Sender: FDA-Public Use
  Company Number: US-TEVA-564917USA

PATIENT
  Sex: Female

DRUGS (1)
  1. ZOLPIDEM [Suspect]
     Active Substance: ZOLPIDEM\ZOLPIDEM TARTRATE
     Route: 065
     Dates: start: 20140329

REACTIONS (26)
  - Muscle strain [Unknown]
  - Tendon injury [Unknown]
  - Ligament rupture [Unknown]
  - Ligament sprain [Unknown]
  - Neck pain [Unknown]
  - Insomnia [Unknown]
  - Overdose [Unknown]
  - Somnambulism [Unknown]
  - Muscle disorder [Unknown]
  - Ligament disorder [Unknown]
  - Activities of daily living impaired [Unknown]
  - Fall [Unknown]
  - Limb injury [Unknown]
  - Muscle rupture [Unknown]
  - Tendon disorder [Unknown]
  - Back pain [Unknown]
  - Neck injury [Unknown]
  - Loss of consciousness [Unknown]
  - Joint injury [Unknown]
  - Contusion [Unknown]
  - Tendon rupture [Unknown]
  - Pain [Unknown]
  - Nervous system disorder [Unknown]
  - Intervertebral disc disorder [Unknown]
  - Spinal column injury [Unknown]
  - Chest pain [Unknown]

NARRATIVE: CASE EVENT DATE: 20140329
